FAERS Safety Report 7915240-4 (Version None)
Quarter: 2011Q4

REPORT INFORMATION
  Report Type: 
  Country: None (occurrence: None)
  Receive Date: 20111115
  Receipt Date: 20111110
  Transmission Date: 20120403
  Serious: Yes (Hospitalization)
  Sender: FDA-Public Use
  Company Number: US-CELGENEUS-163-21880-11082661

PATIENT
  Sex: Male
  Weight: 131.4 kg

DRUGS (14)
  1. ASPIRIN [Concomitant]
     Dosage: 81 MILLIGRAM
     Route: 048
  2. ALLOPURINOL [Concomitant]
     Dosage: 300 MILLIGRAM
     Route: 048
  3. HEPARIN [Concomitant]
     Route: 058
  4. PRILOSEC [Concomitant]
     Dosage: 20 MILLIGRAM
     Route: 048
  5. ACETAMINOPHEN [Concomitant]
     Route: 065
  6. LOVASTATIN [Concomitant]
     Route: 065
  7. LIPITOR [Concomitant]
     Dosage: 1
     Route: 048
  8. PERCOCET [Concomitant]
     Dosage: 5/325MG
     Route: 048
  9. HYZAAR [Concomitant]
     Route: 065
  10. OXYCODONE HCL [Concomitant]
     Route: 065
  11. FUROSEMIDE [Concomitant]
     Dosage: 40 MILLIGRAM
     Route: 048
     Dates: end: 20110818
  12. NEUTRA-PHOS [Concomitant]
     Dosage: 1.25 GRAM
     Route: 048
     Dates: end: 20110818
  13. REVLIMID [Suspect]
     Indication: MULTIPLE MYELOMA
     Dosage: 25 MILLIGRAM
     Route: 048
     Dates: start: 20110720, end: 20110810
  14. FLUIDS [Concomitant]
     Route: 041

REACTIONS (5)
  - NAUSEA [None]
  - BLOOD CREATININE INCREASED [None]
  - BLOOD CALCIUM INCREASED [None]
  - CONSTIPATION [None]
  - VOMITING [None]
